FAERS Safety Report 19168068 (Version 1)
Quarter: 2021Q2

REPORT INFORMATION
  Report Type: Spontaneous
  Country: FR (occurrence: FR)
  Receive Date: 20210422
  Receipt Date: 20210422
  Transmission Date: 20210717
  Serious: Yes (Other)
  Sender: FDA-Public Use
  Company Number: FR-ACCORD-223124

PATIENT
  Age: 72 Year
  Sex: Male

DRUGS (2)
  1. OXALIPLATIN. [Suspect]
     Active Substance: OXALIPLATIN
     Indication: TRANSITIONAL CELL CARCINOMA
  2. GEMCITABINE. [Concomitant]
     Active Substance: GEMCITABINE
     Indication: TRANSITIONAL CELL CARCINOMA

REACTIONS (2)
  - Toxic optic neuropathy [Recovered/Resolved]
  - Off label use [Unknown]
